FAERS Safety Report 7908411-4 (Version None)
Quarter: 2011Q4

REPORT INFORMATION
  Report Type: 
  Country: None (occurrence: None)
  Receive Date: 20111111
  Receipt Date: 20111103
  Transmission Date: 20120403
  Serious: Yes (Other)
  Sender: FDA-Public Use
  Company Number: US-JNJFOC-20111002559

PATIENT
  Sex: Female

DRUGS (5)
  1. SIMPONI [Suspect]
     Indication: ANKYLOSING SPONDYLITIS
     Route: 058
     Dates: start: 20101201, end: 20110901
  2. ORTHO TRI-CYCLEN [Concomitant]
     Route: 048
  3. PAXIL [Concomitant]
  4. VICOPROFEN [Concomitant]
     Indication: PAIN
  5. ALPRAZOLAM [Concomitant]
     Indication: ANXIETY

REACTIONS (2)
  - MATERNAL EXPOSURE DURING PREGNANCY [None]
  - ABORTION SPONTANEOUS [None]
